FAERS Safety Report 6541945-6 (Version None)
Quarter: 2010Q1

REPORT INFORMATION
  Report Type: 
  Country: None (occurrence: None)
  Receive Date: 20100119
  Receipt Date: 20100108
  Transmission Date: 20100710
  Serious: Yes (Death, Life-Threatening)
  Sender: FDA-Public Use
  Company Number: DE-SANOFI-AVENTIS-2010SA001085

PATIENT
  Age: 61 Year
  Sex: Male
  Weight: 70 kg

DRUGS (32)
  1. NOREPINEPHRINE BITARTRATE [Suspect]
     Indication: DRUG USE FOR UNKNOWN INDICATION
     Dosage: VIA PERFUSION APPARATUS
     Dates: start: 20091025
  2. NOREPINEPHRINE BITARTRATE [Suspect]
     Route: 065
     Dates: start: 20091028
  3. ACETYLSALICYLIC ACID [Suspect]
     Indication: DRUG USE FOR UNKNOWN INDICATION
     Route: 048
     Dates: start: 20091020, end: 20091028
  4. DELIX [Suspect]
     Indication: DRUG USE FOR UNKNOWN INDICATION
     Route: 048
     Dates: start: 20091021, end: 20091024
  5. FUROSEMIDE [Suspect]
     Indication: DRUG USE FOR UNKNOWN INDICATION
     Dosage: ALLE 8 STUNDEN
     Route: 042
     Dates: start: 20091028
  6. SIMVASTATIN [Suspect]
     Indication: DRUG USE FOR UNKNOWN INDICATION
     Route: 048
     Dates: start: 20091025, end: 20091027
  7. ZOPICLON [Suspect]
     Indication: DRUG USE FOR UNKNOWN INDICATION
     Route: 048
     Dates: start: 20091020, end: 20091026
  8. LANSOPRAZOLE [Suspect]
     Indication: DRUG USE FOR UNKNOWN INDICATION
     Route: 048
     Dates: start: 20091020, end: 20091028
  9. FINLEPSIN [Suspect]
     Indication: DRUG USE FOR UNKNOWN INDICATION
     Route: 048
     Dates: start: 20091020, end: 20091028
  10. BELOC ZOK [Suspect]
     Indication: DRUG USE FOR UNKNOWN INDICATION
     Dosage: 47.5 MG + 23.25 MG
     Route: 048
     Dates: start: 20091020, end: 20091024
  11. TAVOR [Suspect]
     Indication: DRUG USE FOR UNKNOWN INDICATION
     Route: 048
     Dates: start: 20091020, end: 20091026
  12. TAVOR [Suspect]
     Route: 048
     Dates: start: 20091027
  13. EUNERPAN [Suspect]
     Indication: DRUG USE FOR UNKNOWN INDICATION
     Route: 065
     Dates: start: 20091020, end: 20091027
  14. CLONIDINE HYDROCHLORIDE [Suspect]
     Indication: DRUG USE FOR UNKNOWN INDICATION
     Route: 048
     Dates: start: 20091020, end: 20091024
  15. TORASEMIDE [Suspect]
     Indication: DRUG USE FOR UNKNOWN INDICATION
     Route: 048
     Dates: start: 20091020, end: 20091020
  16. TORASEMIDE [Suspect]
     Route: 048
     Dates: start: 20091021, end: 20091022
  17. TORASEMIDE [Suspect]
     Route: 048
     Dates: start: 20091023, end: 20091026
  18. TORASEMIDE [Suspect]
     Route: 048
     Dates: start: 20091027
  19. ARIXTRA [Suspect]
     Indication: DRUG USE FOR UNKNOWN INDICATION
     Route: 058
     Dates: start: 20091020, end: 20091028
  20. SULBACTAM [Suspect]
     Indication: DRUG USE FOR UNKNOWN INDICATION
     Dosage: ALLE 8 STUNDEN
     Route: 042
     Dates: start: 20091025, end: 20091027
  21. FLUNITRAZEPAM [Suspect]
     Indication: DRUG USE FOR UNKNOWN INDICATION
     Route: 065
     Dates: start: 20091028
  22. ZIENAM [Suspect]
     Indication: DRUG USE FOR UNKNOWN INDICATION
     Dosage: ALLE 8 STUNDEN
     Route: 065
     Dates: start: 20091028
  23. BERLINSULIN H [Concomitant]
     Indication: DRUG USE FOR UNKNOWN INDICATION
     Dosage: 10-8-10-10-10  IU
     Route: 058
     Dates: start: 20091020, end: 20091020
  24. BERLINSULIN H [Concomitant]
     Dosage: 6-6-6-4 IU
     Route: 058
     Dates: start: 20091021, end: 20091025
  25. BERLINSULIN H [Concomitant]
     Dosage: 10-16-14-10 IU
     Route: 058
     Dates: start: 20091027, end: 20091028
  26. BERLINSULIN [Concomitant]
     Indication: DRUG USE FOR UNKNOWN INDICATION
     Dosage: 8-0-0-14 IU
     Route: 058
     Dates: start: 20091020, end: 20091021
  27. ACETYLCYSTEINE [Concomitant]
     Indication: DRUG USE FOR UNKNOWN INDICATION
     Route: 048
     Dates: start: 20091020, end: 20091028
  28. KALINOR-BRAUSETABLETTEN [Concomitant]
     Indication: DRUG USE FOR UNKNOWN INDICATION
     Dosage: 2X2.17 MG POTASSIUM CITRATE UND 2 G POTASSIUM CARBONATE
     Route: 048
     Dates: start: 20091024, end: 20091024
  29. KALINOR-BRAUSETABLETTEN [Concomitant]
     Dosage: 2X2X2.17 MG POTASSIUM CITRATE AND 2 G POTASSIUM CARBONATE
     Route: 048
     Dates: start: 20091025, end: 20091025
  30. KALINOR-BRAUSETABLETTEN [Concomitant]
     Dosage: 2X2.17 MG POTASSIUM CITRATE AND 2 G POTASSIUM CARBONATE
     Route: 048
     Dates: start: 20091026, end: 20091026
  31. KALINOR-BRAUSETABLETTEN [Concomitant]
     Dosage: 3X2.17 MG POTASSIUM CITRATE AND 2 G POTASSIUM CARBONATE
     Route: 048
     Dates: start: 20091027
  32. KALINOR-BRAUSETABLETTEN [Concomitant]
     Dosage: 3X2.17 MG POTASSIUM CITRATE AND 2 G POTASSIUM CARBONATE
     Route: 048
     Dates: start: 20091021, end: 20091023

REACTIONS (3)
  - RENAL FAILURE ACUTE [None]
  - RHABDOMYOLYSIS [None]
  - URINE COLOUR ABNORMAL [None]
